FAERS Safety Report 10408397 (Version 2)
Quarter: 2014Q3

REPORT INFORMATION
  Report Type: Spontaneous
  Country: GB (occurrence: GB)
  Receive Date: 20140826
  Receipt Date: 20140918
  Transmission Date: 20150326
  Serious: Yes (Other)
  Sender: FDA-Public Use
  Company Number: GB-009507513-1408GBR013697

PATIENT
  Age: 29 Year
  Sex: Male
  Weight: 111 kg

DRUGS (9)
  1. E45 LOTION [Concomitant]
     Indication: PROPHYLAXIS
     Dosage: DOSAGE FORM: LOTION
     Route: 065
     Dates: start: 20140513, end: 20140519
  2. CETIRIZINE HYDROCHLORIDE. [Concomitant]
     Active Substance: CETIRIZINE HYDROCHLORIDE
     Indication: PRURITUS
     Dosage: 10 MG, QD
     Route: 048
     Dates: start: 20140627, end: 20140708
  3. RIBAVIRIN. [Suspect]
     Active Substance: RIBAVIRIN
     Indication: CHRONIC HEPATITIS C
     Dosage: 1400MG, QD, CUMULATIVE 8400MG
     Route: 065
     Dates: start: 20140513
  4. INTERFERON NOS [Suspect]
     Active Substance: INTERFERON
     Indication: CHRONIC HEPATITIS C
     Dosage: 150 MCI, QW
     Route: 065
     Dates: start: 20140513
  5. TELAPREVIR (INCIVO) (TELAPREVIR) [Suspect]
     Active Substance: TELAPREVIR
     Indication: CHRONIC HEPATITIS C
     Dosage: 1125MG, BID, TOTAL DAILY DOSE 13500MG
     Route: 048
     Dates: start: 20140513, end: 20140805
  6. LORATADINE. [Concomitant]
     Active Substance: LORATADINE
     Indication: PRURITUS
     Dosage: 10 MG, QD
     Route: 048
     Dates: start: 20140708, end: 20140725
  7. DERMA COOL [Concomitant]
     Indication: PRURITUS
     Dosage: UNK, QD
     Route: 061
     Dates: start: 20140517
  8. ACETAMINOPHEN. [Concomitant]
     Active Substance: ACETAMINOPHEN
     Indication: PYREXIA
     Dosage: UNK, QD
     Route: 065
     Dates: start: 20140513
  9. HYDROXYZINE [Concomitant]
     Active Substance: HYDROXYZINE\HYDROXYZINE HYDROCHLORIDE
     Indication: PRURITUS
     Route: 048
     Dates: start: 20140725, end: 20140811

REACTIONS (3)
  - Urticaria [Recovered/Resolved]
  - Dry skin [Recovered/Resolved]
  - Rash pruritic [Recovering/Resolving]

NARRATIVE: CASE EVENT DATE: 20140519
